FAERS Safety Report 17106621 (Version 4)
Quarter: 2020Q3

REPORT INFORMATION
  Report Type: Spontaneous
  Country: JP (occurrence: JP)
  Receive Date: 20191203
  Receipt Date: 20200702
  Transmission Date: 20201102
  Serious: Yes (Other)
  Sender: FDA-Public Use
  Company Number: JP-TAKEDA-2019TUS058246

PATIENT
  Age: 72 Year
  Sex: Male

DRUGS (11)
  1. VELCADE [Suspect]
     Active Substance: BORTEZOMIB
     Indication: PLASMA CELL MYELOMA
     Dosage: UNK
     Route: 065
  2. DARZALEX [Suspect]
     Active Substance: DARATUMUMAB
     Indication: PLASMA CELL MYELOMA
     Dosage: 1000 MILLILITER
     Route: 041
     Dates: start: 20190918
  3. DARZALEX [Suspect]
     Active Substance: DARATUMUMAB
     Dosage: 2000 MILLILITER
     Route: 041
     Dates: start: 20191211
  4. DARZALEX [Suspect]
     Active Substance: DARATUMUMAB
     Dosage: 2900 MILLILITER
     Route: 041
  5. LENALIDOMIDE [Suspect]
     Active Substance: LENALIDOMIDE
     Indication: PLASMA CELL MYELOMA
     Dosage: UNK
     Route: 065
  6. DARZALEX [Suspect]
     Active Substance: DARATUMUMAB
     Dosage: 1400 MILLILITER
     Route: 041
  7. DARZALEX [Suspect]
     Active Substance: DARATUMUMAB
     Dosage: 1000 MILLILITER
     Route: 041
     Dates: start: 20190925
  8. DARZALEX [Suspect]
     Active Substance: DARATUMUMAB
     Dosage: 1500 MILLILITER
     Route: 041
  9. DEXAMETHASONE. [Suspect]
     Active Substance: DEXAMETHASONE
     Indication: PLASMA CELL MYELOMA
     Dosage: UNK
     Route: 065
  10. DARZALEX [Suspect]
     Active Substance: DARATUMUMAB
     Dosage: 500 MILLILITER
     Route: 041
  11. DARZALEX [Suspect]
     Active Substance: DARATUMUMAB
     Dosage: UNK
     Route: 041
     Dates: start: 20191009

REACTIONS (7)
  - Infusion related reaction [Recovered/Resolved]
  - Wheezing [Unknown]
  - Therapy non-responder [Unknown]
  - Fatigue [Unknown]
  - Blood immunoglobulin G increased [Unknown]
  - Cough [Recovered/Resolved]
  - Dyspnoea [Recovered/Resolved]

NARRATIVE: CASE EVENT DATE: 2019
